FAERS Safety Report 10179167 (Version 1)
Quarter: 2014Q2

REPORT INFORMATION
  Report Type: Spontaneous
  Country: US (occurrence: US)
  Receive Date: 20140519
  Receipt Date: 20140519
  Transmission Date: 20141212
  Serious: No
  Sender: FDA-Public Use
  Company Number: US-009507513-1405USA004528

PATIENT
  Age: 23 Year
  Sex: Female
  Weight: 48.53 kg

DRUGS (1)
  1. NEXPLANON [Suspect]
     Indication: CONTRACEPTION
     Dosage: 3 YEAR IMPLANT IN LEFT ARM
     Route: 059
     Dates: start: 20130910

REACTIONS (7)
  - Headache [Unknown]
  - Nausea [Unknown]
  - Menstruation irregular [Unknown]
  - Menstruation delayed [Unknown]
  - Menorrhagia [Unknown]
  - Implant site pain [Unknown]
  - Implant site pruritus [Unknown]
